FAERS Safety Report 20561075 (Version 1)
Quarter: 2022Q1

REPORT INFORMATION
  Report Type: Report from Study
  Country: CO (occurrence: CO)
  Receive Date: 20220307
  Receipt Date: 20220307
  Transmission Date: 20220423
  Serious: Yes (Life-Threatening, Hospitalization, Other)
  Sender: FDA-Public Use
  Company Number: CO-NOVARTISPH-NVSC2022CO052564

PATIENT
  Sex: Male

DRUGS (1)
  1. ELTROMBOPAG OLAMINE [Suspect]
     Active Substance: ELTROMBOPAG OLAMINE
     Indication: Immune thrombocytopenia
     Dosage: 3 DOSAGE FORM, QD (TABLET)
     Route: 048

REACTIONS (4)
  - Platelet count decreased [Unknown]
  - Feeling abnormal [Unknown]
  - COVID-19 [Unknown]
  - Product availability issue [Unknown]
